FAERS Safety Report 12413360 (Version 1)
Quarter: 2016Q2

REPORT INFORMATION
  Report Type: Spontaneous
  Country: FR (occurrence: FR)
  Receive Date: 20160527
  Receipt Date: 20160527
  Transmission Date: 20160815
  Serious: Yes (Death, Life-Threatening, Hospitalization)
  Sender: FDA-Public Use
  Company Number: FR-ASTRAZENECA-2016SE55999

PATIENT
  Age: 16865 Day
  Sex: Male

DRUGS (8)
  1. VANCOMYCINE [Suspect]
     Active Substance: VANCOMYCIN
     Indication: SEPSIS
     Route: 042
     Dates: start: 20160411
  2. TIENAM [Suspect]
     Active Substance: CILASTATIN SODIUM\IMIPENEM
     Indication: SEPSIS
     Route: 042
     Dates: start: 20160420
  3. CANCIDAS [Suspect]
     Active Substance: CASPOFUNGIN ACETATE
     Indication: CANDIDA SEPSIS
     Dosage: 50.0MG UNKNOWN
     Route: 042
     Dates: start: 20160416
  4. CYMEVAN [Suspect]
     Active Substance: GANCICLOVIR
     Indication: CYTOMEGALOVIRUS INFECTION
     Route: 042
     Dates: start: 20160420
  5. NEORAL [Suspect]
     Active Substance: CYCLOSPORINE
     Indication: LIVER TRANSPLANT
     Route: 065
     Dates: start: 201502
  6. INEXIUM [Suspect]
     Active Substance: ESOMEPRAZOLE
     Indication: ANAL ULCER HAEMORRHAGE
     Route: 048
     Dates: start: 20160420
  7. BACTRIM [Suspect]
     Active Substance: SULFAMETHOXAZOLE\TRIMETHOPRIM
     Indication: PNEUMOCYSTIS JIROVECII PNEUMONIA
     Route: 042
     Dates: start: 20160418
  8. CANCIDAS [Suspect]
     Active Substance: CASPOFUNGIN ACETATE
     Indication: CANDIDA SEPSIS
     Dosage: 70.0MG UNKNOWN
     Route: 042
     Dates: start: 20160420

REACTIONS (4)
  - Product use issue [Unknown]
  - Septic shock [Fatal]
  - Thrombocytopenia [Not Recovered/Not Resolved]
  - Off label use [Not Recovered/Not Resolved]

NARRATIVE: CASE EVENT DATE: 20160420
